FAERS Safety Report 5068953-9 (Version None)
Quarter: 2006Q3

REPORT INFORMATION
  Report Type: 
  Country: None (occurrence: None)
  Receive Date: 20060728
  Receipt Date: 20060717
  Transmission Date: 20061208
  Serious: Yes (Other)
  Sender: FDA-Public Use
  Company Number: IN200607002855

PATIENT
  Age: 31 Year
  Sex: Male

DRUGS (5)
  1. OLANZAPINE [Suspect]
     Indication: SCHIZOPHRENIA
     Dosage: SEE IMAGE
     Route: 048
  2. RISPERIDONE [Concomitant]
  3. CLOZAPINE [Concomitant]
  4. CEPHALOSPORINS AND RELATED SUBSTANCES [Concomitant]
  5. QUINOLONE ANTIBACTERIALS [Concomitant]

REACTIONS (5)
  - LOWER RESPIRATORY TRACT INFECTION [None]
  - NEUTROPENIA [None]
  - PRESCRIBED OVERDOSE [None]
  - PSYCHOTIC DISORDER [None]
  - WHITE BLOOD CELL COUNT DECREASED [None]
